FAERS Safety Report 5786635-2 (Version None)
Quarter: 2008Q2

REPORT INFORMATION
  Report Type: 
  Country: None (occurrence: None)
  Receive Date: 20080624
  Receipt Date: 20080611
  Transmission Date: 20081010
  Serious: Yes (Hospitalization)
  Sender: FDA-Public Use
  Company Number: TW-GENENTECH-263140

PATIENT
  Age: 62 Year
  Sex: Male

DRUGS (2)
  1. MABTHERA [Suspect]
     Indication: RHEUMATOID ARTHRITIS
     Dosage: 1000 MG, UNK
     Route: 051
     Dates: start: 20080107
  2. CHINESE HERBAL MEDICATION (UNK INGREDIENTS) [Suspect]
     Indication: GASTRITIS
     Dates: start: 20080501, end: 20080601

REACTIONS (2)
  - GASTRITIS [None]
  - HEPATITIS B [None]
